FAERS Safety Report 14689180 (Version 1)
Quarter: 2018Q1

REPORT INFORMATION
  Report Type: Spontaneous
  Country: US (occurrence: US)
  Receive Date: 20180328
  Receipt Date: 20180328
  Transmission Date: 20180509
  Serious: Yes (Other)
  Sender: FDA-Public Use
  Company Number: US-GLAXOSMITHKLINE-US2018049809

PATIENT
  Age: 38 Year
  Sex: Female

DRUGS (8)
  1. HYDROCODONE [Concomitant]
     Active Substance: HYDROCODONE
  2. ADVAIR DISKUS [Concomitant]
     Active Substance: FLUTICASONE PROPIONATE\SALMETEROL XINAFOATE
  3. FOLIC ACID. [Concomitant]
     Active Substance: FOLIC ACID
  4. SINGULAIR [Concomitant]
     Active Substance: MONTELUKAST SODIUM
  5. BENLYSTA [Suspect]
     Active Substance: BELIMUMAB
     Indication: SYSTEMIC LUPUS ERYTHEMATOSUS
     Dosage: UNK UNK, CYC
     Route: 042
     Dates: start: 201709
  6. NAPROXEN. [Concomitant]
     Active Substance: NAPROXEN
  7. VENTOLIN [Concomitant]
     Active Substance: ALBUTEROL SULFATE
  8. ALLERGY D (LORATADINE + PSEUDOEPHEDRINE) [Concomitant]

REACTIONS (6)
  - Pulmonary pain [Unknown]
  - Chest pain [Unknown]
  - Erythema [Unknown]
  - Pneumonia [Recovering/Resolving]
  - Localised infection [Unknown]
  - Dyspnoea [Unknown]

NARRATIVE: CASE EVENT DATE: 201712
